FAERS Safety Report 17950533 (Version 1)
Quarter: 2020Q2

REPORT INFORMATION
  Report Type: Report from Study
  Country: ES (occurrence: ES)
  Receive Date: 20200626
  Receipt Date: 20200626
  Transmission Date: 20200714
  Serious: Yes (Other)
  Sender: FDA-Public Use
  Company Number: ES-MYLANLABS-2020M1057911

PATIENT
  Age: 81 Year
  Sex: Male
  Weight: 83 kg

DRUGS (4)
  1. CEFTRIAXONA                        /00672201/ [Concomitant]
     Active Substance: CEFTRIAXONE
     Indication: COVID-19
     Dosage: 1 GRAM, QD
     Route: 042
     Dates: start: 20200319, end: 20200323
  2. HIDROXICLOROQUINA SULFATO [Interacting]
     Active Substance: HYDROXYCHLOROQUINE SULFATE
     Indication: COVID-19
     Dosage: 400 MILLIGRAM, QD
     Route: 048
     Dates: start: 20200319, end: 20200323
  3. KALETRA [Interacting]
     Active Substance: LOPINAVIR\RITONAVIR
     Indication: COVID-19
     Dosage: 2 DOSAGE FORM, QD (120 TABLETS)
     Route: 048
     Dates: start: 20200319, end: 20200326
  4. AZITHROMYCIN ANHYDROUS. [Suspect]
     Active Substance: AZITHROMYCIN ANHYDROUS
     Indication: COVID-19
     Dosage: 500 MILLIGRAM, QD
     Route: 048
     Dates: start: 20200319, end: 20200320

REACTIONS (3)
  - Drug interaction [Unknown]
  - Long QT syndrome [Recovered/Resolved]
  - Off label use [Unknown]

NARRATIVE: CASE EVENT DATE: 202003
